FAERS Safety Report 12546616 (Version 1)
Quarter: 2016Q3

REPORT INFORMATION
  Report Type: Spontaneous
  Country: FR (occurrence: FI)
  Receive Date: 20160711
  Receipt Date: 20160711
  Transmission Date: 20161109
  Serious: Yes (Other)
  Sender: FDA-Public Use
  Company Number: FI-FRI-1000085978

PATIENT
  Age: 71 Year
  Sex: Female

DRUGS (7)
  1. KETIPINOR [Concomitant]
     Active Substance: QUETIAPINE FUMARATE
     Dates: start: 201604, end: 20160531
  2. MELATONIN [Concomitant]
     Active Substance: MELATONIN
     Indication: INSOMNIA
     Dates: start: 20160414
  3. KETIPINOR [Concomitant]
     Active Substance: QUETIAPINE FUMARATE
     Indication: BIPOLAR DISORDER
     Dates: start: 201604, end: 20160531
  4. BETASERC [Concomitant]
     Active Substance: BETAHISTINE
     Indication: DIZZINESS
     Dates: start: 20090916
  5. ASENAPINE [Suspect]
     Active Substance: ASENAPINE
     Indication: MANIA
     Dosage: UNK
     Route: 050
     Dates: start: 20150302, end: 20150505
  6. ASENAPINE [Suspect]
     Active Substance: ASENAPINE
     Indication: BIPOLAR DISORDER
     Dosage: 10 MG
     Route: 050
     Dates: start: 20160329, end: 20160417
  7. ASENAPINE [Suspect]
     Active Substance: ASENAPINE
     Dosage: 10 MG
     Route: 050
     Dates: start: 20160318, end: 20160426

REACTIONS (2)
  - Liver injury [Not Recovered/Not Resolved]
  - Hepatic enzyme increased [Not Recovered/Not Resolved]

NARRATIVE: CASE EVENT DATE: 20160419
